FAERS Safety Report 4630600-5 (Version None)
Quarter: 2005Q2

REPORT INFORMATION
  Report Type: 
  Country: None (occurrence: None)
  Receive Date: 20050408
  Receipt Date: 20050328
  Transmission Date: 20051028
  Serious: Yes (Death, Other)
  Sender: FDA-Public Use
  Company Number: JP-MERCK-0503USA05135

PATIENT
  Age: 25 Year
  Sex: Female

DRUGS (6)
  1. COSMEGEN [Suspect]
     Indication: NEPHROBLASTOMA
     Route: 042
  2. COSMEGEN [Suspect]
     Route: 042
  3. ONCOVIN [Suspect]
     Indication: NEPHROBLASTOMA
     Route: 042
  4. ONCOVIN [Suspect]
     Route: 042
  5. ADRIACIN [Suspect]
     Indication: NEPHROBLASTOMA
     Route: 042
  6. ADRIACIN [Suspect]
     Route: 042

REACTIONS (4)
  - BONE MARROW DEPRESSION [None]
  - METASTASES TO BONE [None]
  - METASTASES TO LIVER [None]
  - METASTASES TO LUNG [None]
